FAERS Safety Report 5143815-7 (Version None)
Quarter: 2006Q4

REPORT INFORMATION
  Report Type: 
  Country: None (occurrence: None)
  Receive Date: 20061106
  Receipt Date: 20061025
  Transmission Date: 20070319
  Serious: Yes (Other)
  Sender: FDA-Public Use
  Company Number: PHFR2006GB03186

PATIENT
  Sex: Female

DRUGS (2)
  1. TEGRETOL [Suspect]
     Indication: CONVULSION
     Dosage: 200 MG, BID
     Route: 048
     Dates: start: 20060501
  2. TEGRETOL [Suspect]
     Dosage: 1 DF, QD
     Route: 048
     Dates: end: 20060701

REACTIONS (6)
  - DECREASED APPETITE [None]
  - DIARRHOEA [None]
  - HEPATOCELLULAR DAMAGE [None]
  - INSOMNIA [None]
  - MALAISE [None]
  - WEIGHT DECREASED [None]
